FAERS Safety Report 7893742-7 (Version None)
Quarter: 2011Q4

REPORT INFORMATION
  Report Type: 
  Country: None (occurrence: None)
  Receive Date: 20111104
  Receipt Date: 20111028
  Transmission Date: 20120403
  Serious: Yes (Other)
  Sender: FDA-Public Use
  Company Number: PHHY2011FR96990

PATIENT
  Age: 68 Year

DRUGS (5)
  1. DEXAMETHASONE [Suspect]
     Indication: DIFFUSE LARGE B-CELL LYMPHOMA
  2. OXALIPLATIN [Suspect]
     Indication: DIFFUSE LARGE B-CELL LYMPHOMA
  3. FILGRASTIM [Concomitant]
     Dosage: 5 UG/KG, UNK
  4. RADIOTHERAPY [Concomitant]
  5. CYTARABINE [Suspect]
     Indication: DIFFUSE LARGE B-CELL LYMPHOMA

REACTIONS (1)
  - THROMBOCYTOPENIA [None]
